FAERS Safety Report 4990405-2 (Version None)
Quarter: 2006Q1

REPORT INFORMATION
  Report Type: 
  Country: None (occurrence: None)
  Receive Date: 20060315
  Receipt Date: 20050315
  Transmission Date: 20060701
  Serious: Yes (Other)
  Sender: FDA-Public Use
  Company Number: USA050392790

PATIENT
  Age: 73 Year
  Sex: Female

DRUGS (6)
  1. ALIMTA [Suspect]
     Indication: LUNG CARCINOMA CELL TYPE UNSPECIFIED STAGE IV
     Dates: start: 20050101
  2. GEMZAR [Suspect]
     Indication: LUNG CARCINOMA CELL TYPE UNSPECIFIED STAGE IV
     Dates: start: 20040101, end: 20040101
  3. NAUSEA MEDICINE [Concomitant]
  4. FOLIC ACID [Concomitant]
  5. VITAMIN B12 [Concomitant]
  6. NAVELBINE [Concomitant]

REACTIONS (5)
  - HAEMOPTYSIS [None]
  - LIP EXFOLIATION [None]
  - MALIGNANT NEOPLASM PROGRESSION [None]
  - PHARYNGOLARYNGEAL PAIN [None]
  - PYREXIA [None]
